FAERS Safety Report 10994326 (Version 1)
Quarter: 2015Q2

REPORT INFORMATION
  Report Type: Spontaneous
  Country: US (occurrence: None)
  Receive Date: 20150403
  Receipt Date: 20150403
  Transmission Date: 20150821
  Serious: Yes (Hospitalization, Other)
  Sender: FDA-Public Use
  Company Number: 2015COV00064

PATIENT
  Age: 57 Year
  Sex: Female
  Weight: 129.3 kg

DRUGS (9)
  1. ATORVASTATIN [Concomitant]
     Active Substance: ATORVASTATIN
  2. HYDROCODONE [Concomitant]
     Active Substance: HYDROCODONE
  3. CALCIUM [Concomitant]
     Active Substance: CALCIUM
  4. VITAMIN D [Concomitant]
     Active Substance: CHOLECALCIFEROL
  5. HUMIRA [Suspect]
     Active Substance: ADALIMUMAB
     Indication: RHEUMATOID ARTHRITIS
     Dosage: 2X/MONTH
     Route: 058
     Dates: start: 2012
  6. LYRICA [Concomitant]
     Active Substance: PREGABALIN
  7. CITALOPRAM [Concomitant]
     Active Substance: CITALOPRAM HYDROBROMIDE
  8. PLAQUENIL [Suspect]
     Active Substance: HYDROXYCHLOROQUINE SULFATE
     Route: 048
     Dates: start: 2010
  9. MAGNESIUM [Concomitant]
     Active Substance: MAGNESIUM

REACTIONS (11)
  - Ankle fracture [None]
  - Blood pressure decreased [None]
  - Head injury [None]
  - Influenza [None]
  - Lip injury [None]
  - Spinal cord compression [None]
  - Seizure [None]
  - Blood glucose decreased [None]
  - Cough [None]
  - Fall [None]
  - Alopecia [None]

NARRATIVE: CASE EVENT DATE: 2010
